FAERS Safety Report 16148323 (Version 3)
Quarter: 2019Q3

REPORT INFORMATION
  Report Type: Spontaneous
  Country: US (occurrence: US)
  Receive Date: 20190402
  Receipt Date: 20190717
  Transmission Date: 20191004
  Serious: No
  Sender: FDA-Public Use
  Company Number: US-JNJFOC-20190313892

PATIENT
  Age: 46 Year
  Sex: Female
  Weight: 48.12 kg

DRUGS (1)
  1. WOMENS ROGAINE UNSCENTED [Suspect]
     Active Substance: MINOXIDIL
     Indication: ALOPECIA
     Dosage: 1 PUMP
     Route: 061
     Dates: start: 20190308

REACTIONS (3)
  - Inappropriate schedule of product administration [Recovered/Resolved]
  - Hair texture abnormal [Recovered/Resolved]
  - Incorrect dose administered [Recovered/Resolved]

NARRATIVE: CASE EVENT DATE: 20190308
